FAERS Safety Report 23410348 (Version 1)
Quarter: 2024Q1

REPORT INFORMATION
  Report Type: Spontaneous
  Country: US (occurrence: None)
  Receive Date: 20240116
  Receipt Date: 20240116
  Transmission Date: 20240410
  Serious: Yes (Hospitalization)
  Sender: FDA-Public Use
  Company Number: None

PATIENT
  Age: 80 Year
  Sex: Male
  Weight: 83.25 kg

DRUGS (3)
  1. LECANEMAB [Suspect]
     Active Substance: LECANEMAB
     Indication: Dementia Alzheimer^s type
     Dates: start: 20240102, end: 20240102
  2. DONEPEZIL [Concomitant]
     Active Substance: DONEPEZIL
  3. MEMANTINE [Concomitant]
     Active Substance: MEMANTINE

REACTIONS (6)
  - Influenza like illness [None]
  - Confusional state [None]
  - Asthenia [None]
  - Fall [None]
  - Myalgia [None]
  - Urinary incontinence [None]

NARRATIVE: CASE EVENT DATE: 20240104
